FAERS Safety Report 8559180-9 (Version None)
Quarter: 2012Q3

REPORT INFORMATION
  Report Type: 
  Country: None (occurrence: None)
  Receive Date: 20120802
  Receipt Date: 20120730
  Transmission Date: 20120928
  Serious: Yes (Hospitalization)
  Sender: FDA-Public Use
  Company Number: US-AMGEN-USASP2012047621

PATIENT
  Age: 49 Year
  Sex: Female

DRUGS (1)
  1. ENBREL [Suspect]
     Indication: RHEUMATOID ARTHRITIS
     Dosage: UNK
     Dates: start: 20120329, end: 20120713

REACTIONS (9)
  - MALAISE [None]
  - ASTHENIA [None]
  - NAUSEA [None]
  - CENTRAL NERVOUS SYSTEM LESION [None]
  - PAIN [None]
  - FATIGUE [None]
  - MENTAL IMPAIRMENT [None]
  - SLOW SPEECH [None]
  - CEREBROVASCULAR ACCIDENT [None]
